FAERS Safety Report 8380391-X (Version None)
Quarter: 2012Q2

REPORT INFORMATION
  Report Type: 
  Country: None (occurrence: None)
  Receive Date: 20120522
  Receipt Date: 20111205
  Transmission Date: 20120825
  Serious: Yes (Life-Threatening, Hospitalization)
  Sender: FDA-Public Use
  Company Number: 2011-03702

PATIENT
  Age: 72 Year
  Sex: Male

DRUGS (9)
  1. IMMUCYST [Suspect]
     Indication: TRANSITIONAL CELL CARCINOMA
     Dosage: I.VES., BLADDER
     Route: 043
     Dates: start: 20110331, end: 20110331
  2. AMLODIPINE [Concomitant]
  3. RAMIPRIL [Concomitant]
  4. NEXIUM [Concomitant]
  5. CORDARONE [Concomitant]
  6. KAYEXALATE [Concomitant]
  7. EUPRESSYL (URAPIDIL) [Concomitant]
  8. FUROSEMIDE [Concomitant]
  9. NEURONTIN [Concomitant]

REACTIONS (8)
  - RESPIRATORY DISTRESS [None]
  - SEPSIS [None]
  - BOVINE TUBERCULOSIS [None]
  - CHILLS [None]
  - HEART RATE IRREGULAR [None]
  - APPARENT LIFE THREATENING EVENT [None]
  - HYPOTENSION [None]
  - ATRIAL FIBRILLATION [None]
